FAERS Safety Report 24209449 (Version 2)
Quarter: 2024Q3

REPORT INFORMATION
  Report Type: Report from Study
  Country: JP (occurrence: JP)
  Receive Date: 20240814
  Receipt Date: 20240821
  Transmission Date: 20241016
  Serious: Yes (Other)
  Sender: ACCORD
  Company Number: JP-Accord-440937

PATIENT

DRUGS (2)
  1. CISPLATIN [Suspect]
     Active Substance: CISPLATIN
     Indication: Bladder cancer
     Dosage: DAY 8, REPEATED EVERY 5 WEEKS
     Route: 042
  2. GIMERACIL\OTERACIL\TEGAFUR [Suspect]
     Active Substance: GIMERACIL\OTERACIL POTASSIUM\TEGAFUR
     Indication: Bladder cancer
     Dosage: 80-120MG ON DAYS 1-21
     Route: 048

REACTIONS (2)
  - Anaemia [Unknown]
  - Neutropenia [Unknown]
